FAERS Safety Report 6142908-5 (Version None)
Quarter: 2009Q2

REPORT INFORMATION
  Report Type: 
  Country: None (occurrence: None)
  Receive Date: 20090403
  Receipt Date: 20090324
  Transmission Date: 20091009
  Serious: Yes (Hospitalization)
  Sender: FDA-Public Use
  Company Number: IT-BAYER-200917259GPV

PATIENT
  Age: 75 Year
  Sex: Female

DRUGS (10)
  1. CAMPATH [Suspect]
     Indication: PERIPHERAL T-CELL LYMPHOMA UNSPECIFIED
     Dosage: DOSE ESCALATION
     Route: 058
     Dates: start: 20080302, end: 20080302
  2. CAMPATH [Suspect]
     Dosage: DOSE ESCALATION
     Route: 058
     Dates: start: 20080303, end: 20080303
  3. CAMPATH [Suspect]
     Dosage: C-CHOP, 6 CYCLES EVERY 21 DAYS, ON DAY 0 BEFORE EVERY CHOP
     Route: 058
     Dates: start: 20080305, end: 20080718
  4. DOXORUBICIN HCL [Suspect]
     Indication: PERIPHERAL T-CELL LYMPHOMA UNSPECIFIED
     Dosage: C-CHOP, 6 CYCLES EVERY 3 WEEKS
     Route: 065
     Dates: start: 20080305, end: 20080718
  5. VINCRISTINE [Suspect]
     Indication: PERIPHERAL T-CELL LYMPHOMA UNSPECIFIED
     Dosage: C-CHOP, 6 CYCLES EVERY 3 WEEKS
     Route: 065
     Dates: start: 20080305, end: 20080718
  6. CYCLOPHOSPHAMIDE [Suspect]
     Indication: PERIPHERAL T-CELL LYMPHOMA UNSPECIFIED
     Dosage: C-CHOP, 6 CYCLES EVERY 3 WEEKS
     Route: 065
     Dates: start: 20080305, end: 20080718
  7. PREDNISONE [Suspect]
     Indication: PERIPHERAL T-CELL LYMPHOMA UNSPECIFIED
     Dosage: C-CHOP, 6 CYCLES EVERY 3 WEEKS ON TREATMENT DAYS 1 - 5
     Route: 048
     Dates: start: 20080305, end: 20080718
  8. METHOTREXATE [Suspect]
     Indication: PERIPHERAL T-CELL LYMPHOMA UNSPECIFIED
     Dosage: TOTAL DAILY DOSE: 12.5 MG
     Route: 037
     Dates: start: 20080305, end: 20080718
  9. ARA-C [Suspect]
     Indication: PERIPHERAL T-CELL LYMPHOMA UNSPECIFIED
     Dosage: TOTAL DAILY DOSE: 30 MG
     Route: 037
     Dates: start: 20080305, end: 20080718
  10. DEXAMETHASONE [Suspect]
     Indication: PERIPHERAL T-CELL LYMPHOMA UNSPECIFIED
     Dosage: TOTAL DAILY DOSE: 4 MG
     Route: 037
     Dates: start: 20080305, end: 20080718

REACTIONS (3)
  - GENERAL PHYSICAL HEALTH DETERIORATION [None]
  - INFECTION [None]
  - PYREXIA [None]
